FAERS Safety Report 11412395 (Version 1)
Quarter: 2015Q3

REPORT INFORMATION
  Report Type: Spontaneous
  Country: US (occurrence: US)
  Receive Date: 20150824
  Receipt Date: 20150824
  Transmission Date: 20151125
  Serious: No
  Sender: FDA-Public Use
  Company Number: US-JNJFOC-20150716081

PATIENT
  Age: 61 Year
  Sex: Female
  Weight: 61.24 kg

DRUGS (2)
  1. WOMENS ROGAINE [Suspect]
     Active Substance: MINOXIDIL
     Indication: ALOPECIA
     Dosage: 1 TIME IN MORNING AND 1 TIME IN THE EVENING
     Route: 061
  2. WOMENS ROGAINE [Suspect]
     Active Substance: MINOXIDIL
     Route: 061

REACTIONS (3)
  - Pain of skin [Recovered/Resolved]
  - Skin irritation [Recovered/Resolved]
  - Rash [Recovered/Resolved]
